FAERS Safety Report 8455046-3 (Version None)
Quarter: 2012Q2

REPORT INFORMATION
  Report Type: 
  Country: None (occurrence: None)
  Receive Date: 20120621
  Receipt Date: 20120618
  Transmission Date: 20120825
  Serious: No
  Sender: FDA-Public Use
  Company Number: US-BAYER-2012-060202

PATIENT
  Age: 42 Year
  Sex: Female

DRUGS (1)
  1. CLIMARA PRO [Suspect]
     Dosage: UNK
     Dates: start: 20100301

REACTIONS (4)
  - HYPERHIDROSIS [None]
  - APPLICATION SITE ERYTHEMA [None]
  - APPLICATION SITE DRYNESS [None]
  - APPLICATION SITE IRRITATION [None]
